FAERS Safety Report 5732086-6 (Version None)
Quarter: 2008Q2

REPORT INFORMATION
  Report Type: 
  Country: None (occurrence: None)
  Receive Date: 20080508
  Receipt Date: 20080501
  Transmission Date: 20081010
  Serious: Yes (Other)
  Sender: FDA-Public Use
  Company Number: GB-ALLERGAN-0805261US

PATIENT
  Sex: Male

DRUGS (3)
  1. EXOCIN [Suspect]
     Indication: KERATITIS
     Dosage: UNK, Q1HR
     Route: 047
     Dates: start: 20040101
  2. CEFUROXIME [Suspect]
     Indication: KERATITIS
     Dosage: 1 GTT, Q1HR
     Route: 047
     Dates: start: 20040101
  3. DEXAMETHASONE [Suspect]
     Indication: KERATITIS
     Route: 047
     Dates: start: 20050101

REACTIONS (1)
  - CORNEAL DEPOSITS [None]
